FAERS Safety Report 6369583-9 (Version None)
Quarter: 2009Q3

REPORT INFORMATION
  Report Type: 
  Country: None (occurrence: None)
  Receive Date: 20090923
  Receipt Date: 20090914
  Transmission Date: 20100115
  Serious: Yes (Hospitalization, Other)
  Sender: FDA-Public Use
  Company Number: PHHY2009CN33352

PATIENT
  Age: 45 Year
  Sex: Male

DRUGS (1)
  1. SEBIVO [Suspect]
     Indication: CHRONIC HEPATITIS
     Dosage: 600 MG, QD
     Route: 048
     Dates: start: 20090701

REACTIONS (4)
  - ALANINE AMINOTRANSFERASE INCREASED [None]
  - GAMMA-GLUTAMYLTRANSFERASE INCREASED [None]
  - JAUNDICE [None]
  - LIVER DISORDER [None]
